FAERS Safety Report 7508601-9 (Version None)
Quarter: 2011Q2

REPORT INFORMATION
  Report Type: 
  Country: None (occurrence: None)
  Receive Date: 20110527
  Receipt Date: 20101208
  Transmission Date: 20111010
  Serious: No
  Sender: FDA-Public Use
  Company Number: A0900225A

PATIENT
  Age: 79 Year
  Sex: Female

DRUGS (1)
  1. FLOLAN [Suspect]
     Dosage: 31NGKM CONTINUOUS

REACTIONS (2)
  - FALL [None]
  - CONTUSION [None]
